FAERS Safety Report 9554215 (Version 1)
Quarter: 2013Q3

REPORT INFORMATION
  Report Type: Spontaneous
  Country: AU (occurrence: AU)
  Receive Date: 20130925
  Receipt Date: 20130925
  Transmission Date: 20140515
  Serious: Yes (Hospitalization)
  Sender: FDA-Public Use
  Company Number: AU-ELI_LILLY_AND_COMPANY-AU201309007865

PATIENT
  Sex: Male

DRUGS (3)
  1. CIALIS [Suspect]
     Dosage: 1 DF, UNKNOWN
     Route: 048
  2. ATACAND [Concomitant]
     Dosage: 5 MG, QD
     Route: 048
  3. CRESTOR [Concomitant]
     Dosage: UNK

REACTIONS (2)
  - Diplopia [Unknown]
  - Headache [Unknown]
